FAERS Safety Report 4596760-X (Version None)
Quarter: 2005Q1

REPORT INFORMATION
  Report Type: 
  Country: None (occurrence: None)
  Receive Date: 20050228
  Receipt Date: 20040504
  Transmission Date: 20050727
  Serious: No
  Sender: FDA-Public Use
  Company Number: 7935

PATIENT
  Age: 6 Year
  Sex: Female

DRUGS (8)
  1. METHOTREXATE [Suspect]
     Indication: JUVENILE ARTHRITIS
     Dosage: 10 MG/15 MG PO
     Route: 048
     Dates: start: 20000329, end: 20020108
  2. METHOTREXATE [Suspect]
     Indication: JUVENILE ARTHRITIS
     Dosage: 10 MG/15 MG PO
     Route: 048
     Dates: start: 20020109, end: 20020130
  3. METHOTREXATE [Suspect]
     Indication: JUVENILE ARTHRITIS
     Dosage: 10 MG/15 MG PO
     Route: 048
     Dates: start: 20020109, end: 20020130
  4. METHOTREXATE [Suspect]
     Indication: JUVENILE ARTHRITIS
     Dosage: 10 MG/15 MG PO
     Route: 048
  5. PIZOTIFEN [Suspect]
     Indication: MIGRAINE
     Dosage: 1.5 MG PO
     Route: 048
     Dates: start: 20011031
  6. FOLIC ACID [Concomitant]
  7. IBUPROFEN [Concomitant]
  8. PREDNISOLONE [Concomitant]

REACTIONS (2)
  - ALANINE AMINOTRANSFERASE INCREASED [None]
  - ASPARTATE AMINOTRANSFERASE INCREASED [None]
